FAERS Safety Report 20128329 (Version 3)
Quarter: 2024Q1

REPORT INFORMATION
  Report Type: Report from Study
  Country: US (occurrence: US)
  Receive Date: 20211129
  Receipt Date: 20240103
  Transmission Date: 20240410
  Serious: No
  Sender: FDA-Public Use
  Company Number: US-ACADIA PHARMACEUTICALS INC.-ACA-2021-PIM-003931

PATIENT
  Age: 82 Year
  Sex: Male
  Weight: 87 kg

DRUGS (13)
  1. NUPLAZID [Suspect]
     Active Substance: PIMAVANSERIN TARTRATE
     Indication: Parkinson^s disease psychosis
     Dosage: 34 MILLIGRAM, QD
     Route: 065
     Dates: start: 202109
  2. NUPLAZID [Suspect]
     Active Substance: PIMAVANSERIN TARTRATE
     Indication: Hallucination
     Dosage: 34 MILLIGRAM, QD
     Route: 048
     Dates: start: 20231201
  3. NUPLAZID [Suspect]
     Active Substance: PIMAVANSERIN TARTRATE
     Indication: Delusion
  4. CARBIDOPA [Suspect]
     Active Substance: CARBIDOPA
  5. MIRAPEX [Concomitant]
     Active Substance: PRAMIPEXOLE DIHYDROCHLORIDE
  6. CARBIDOPA\LEVODOPA [Concomitant]
     Active Substance: CARBIDOPA\LEVODOPA
  7. PREGABALIN [Concomitant]
     Active Substance: PREGABALIN
  8. hormone therapy for cancer [Concomitant]
  9. COSOPT [Concomitant]
     Active Substance: DORZOLAMIDE HYDROCHLORIDE\TIMOLOL MALEATE
  10. another eye drop [Concomitant]
  11. CALCIUM [Concomitant]
     Active Substance: CALCIUM
  12. MAGNESIUM [Concomitant]
     Active Substance: MAGNESIUM
  13. CARBIDOPA [Concomitant]
     Active Substance: CARBIDOPA

REACTIONS (12)
  - Disorientation [Not Recovered/Not Resolved]
  - Incoherent [Not Recovered/Not Resolved]
  - Lethargy [Not Recovered/Not Resolved]
  - Delusion [Not Recovered/Not Resolved]
  - Erythema [Not Recovered/Not Resolved]
  - Sleep deficit [Not Recovered/Not Resolved]
  - Confusional state [Not Recovered/Not Resolved]
  - Peripheral swelling [Not Recovered/Not Resolved]
  - Hallucination [Not Recovered/Not Resolved]
  - Drug ineffective [Not Recovered/Not Resolved]
  - Hallucination, visual [Not Recovered/Not Resolved]
  - Hallucination [Not Recovered/Not Resolved]

NARRATIVE: CASE EVENT DATE: 20231201
